FAERS Safety Report 9380086 (Version 1)
Quarter: 2013Q3

REPORT INFORMATION
  Report Type: Spontaneous
  Country: FR (occurrence: FR)
  Receive Date: 20130702
  Receipt Date: 20130702
  Transmission Date: 20140515
  Serious: Yes (Death, Other)
  Sender: FDA-Public Use
  Company Number: FR-ROXANE LABORATORIES, INC.-2013-RO-01077RO

PATIENT
  Age: 58 Year
  Sex: Female

DRUGS (6)
  1. CYCLOPHOSPHAMIDE TABLETS USP [Suspect]
     Indication: ANGIOSARCOMA
     Dosage: 50 MG
     Dates: start: 200607, end: 200612
  2. PACLITAXEL [Suspect]
     Indication: ANGIOSARCOMA
  3. ETOPOSIDE [Suspect]
     Indication: ANGIOSARCOMA
  4. IFOSFAMIDE [Suspect]
     Indication: ANGIOSARCOMA
  5. CISPLATIN [Suspect]
     Indication: ANGIOSARCOMA
  6. SUNITINIB [Suspect]
     Indication: ANGIOSARCOMA

REACTIONS (2)
  - Death [Fatal]
  - Malignant neoplasm progression [Unknown]
